FAERS Safety Report 13596837 (Version 1)
Quarter: 2017Q2

REPORT INFORMATION
  Report Type: Spontaneous
  Country: US (occurrence: US)
  Receive Date: 20170531
  Receipt Date: 20170531
  Transmission Date: 20170830
  Serious: Yes (Other)
  Sender: FDA-Public Use
  Company Number: US-BION-006331

PATIENT
  Sex: Female

DRUGS (1)
  1. IMODIUM A-D [Suspect]
     Active Substance: LOPERAMIDE HYDROCHLORIDE
     Indication: DIARRHOEA
     Dosage: PATIENT TOOK ONLY FIVE CAPS IN A 48 HOUR PERIOD.??FREQUENCY: ONCE OR TWICE PER YEAR

REACTIONS (2)
  - Flatulence [Unknown]
  - Epistaxis [Unknown]
